FAERS Safety Report 22656891 (Version 1)
Quarter: 2023Q2

REPORT INFORMATION
  Report Type: Other
  Country: DE (occurrence: DE)
  Receive Date: 20230630
  Receipt Date: 20230630
  Transmission Date: 20230721
  Serious: Yes (Hospitalization)
  Sender: FDA-Public Use
  Company Number: DE-CELLTRION INC.-2023DE012911

PATIENT

DRUGS (2)
  1. ADALIMUMAB [Suspect]
     Active Substance: ADALIMUMAB
     Indication: Product used for unknown indication
     Dosage: 40 MG EVERY 14 DAYS
     Route: 058
     Dates: start: 201401
  2. METHOTREXATE SODIUM [Concomitant]
     Active Substance: METHOTREXATE SODIUM
     Indication: Product used for unknown indication
     Dosage: 15 MG, 1/WEEK
     Route: 058
     Dates: start: 201401, end: 201503

REACTIONS (6)
  - Joint arthroplasty [Unknown]
  - Shoulder arthroplasty [Unknown]
  - Neurolysis [Unknown]
  - Bone operation [Unknown]
  - Osteoarthritis [Unknown]
  - Synovial cyst [Unknown]

NARRATIVE: CASE EVENT DATE: 20170301
